FAERS Safety Report 9652447 (Version 2)
Quarter: 2013Q4

REPORT INFORMATION
  Report Type: Spontaneous
  Country: US (occurrence: None)
  Receive Date: 20131025
  Receipt Date: 20131030
  Transmission Date: 20140711
  Serious: Yes (Hospitalization)
  Sender: FDA-Public Use
  Company Number: SYM-2013-11856

PATIENT
  Age: 58 Year
  Sex: Male

DRUGS (4)
  1. FLUOROURACIL [Suspect]
     Indication: PRODUCT USED FOR UNKNOWN INDICATION
  2. FLUOROURACIL [Suspect]
  3. CISPLATIN (CISPLATIN) (CISPLATIN) [Concomitant]
  4. DOCETAXEL (DOCETAXEL) (DOCETAXEL) [Concomitant]

REACTIONS (9)
  - Myocarditis [None]
  - Arteriospasm coronary [None]
  - Cardiac arrest [None]
  - Ventricular fibrillation [None]
  - Cardiotoxicity [None]
  - Sinus bradycardia [None]
  - Atrial fibrillation [None]
  - Ventricular tachycardia [None]
  - Off label use [None]
